FAERS Safety Report 8356409-7 (Version None)
Quarter: 2012Q2

REPORT INFORMATION
  Report Type: 
  Country: None (occurrence: None)
  Receive Date: 20120514
  Receipt Date: 20110427
  Transmission Date: 20120825
  Serious: No
  Sender: FDA-Public Use
  Company Number: US-TEVA-2011002071

PATIENT
  Sex: Female
  Weight: 87.622 kg

DRUGS (9)
  1. NUVIGIL [Suspect]
     Indication: NARCOLEPSY
     Dosage: 250 MILLIGRAM;
     Route: 048
     Dates: start: 20100501
  2. ENJUVIA [Concomitant]
     Dates: start: 20090801
  3. ASPIRIN [Concomitant]
     Dates: start: 20090801
  4. XANAX XR [Concomitant]
     Dates: start: 20030101
  5. TOPAMAX [Concomitant]
  6. PRIOLSEC [Concomitant]
  7. WELLBUTRIN XL [Concomitant]
     Dates: start: 20030101
  8. REGLAN [Concomitant]
     Dates: start: 20090101
  9. SYNTHROID [Concomitant]
     Dates: start: 20090101

REACTIONS (4)
  - DRUG INEFFECTIVE [None]
  - TACHYCARDIA [None]
  - PALPITATIONS [None]
  - NAUSEA [None]
